FAERS Safety Report 7860244-3 (Version None)
Quarter: 2011Q4

REPORT INFORMATION
  Report Type: 
  Country: None (occurrence: None)
  Receive Date: 20111027
  Receipt Date: 20111020
  Transmission Date: 20120403
  Serious: Yes (Death, Hospitalization)
  Sender: FDA-Public Use
  Company Number: DE-ROCHE-1002515

PATIENT
  Sex: Male
  Weight: 85 kg

DRUGS (10)
  1. TORSEMIDE [Concomitant]
     Dosage: 1 DF/DAY
  2. MORPHINE [Concomitant]
  3. PANTOPRAZOLE SODIUM [Concomitant]
  4. LEVOTHYROXINE SODIUM [Concomitant]
  5. MOVIPREP [Concomitant]
     Dosage: 2 DF/DAY
  6. AVASTIN [Suspect]
     Indication: GASTROINTESTINAL CARCINOMA
     Route: 033
     Dates: start: 20110928, end: 20111004
  7. MORPHINE SULFATE [Concomitant]
  8. SPIRONOLACTONE [Concomitant]
     Dosage: 1 DF/DAY
  9. LYRICA [Concomitant]
     Dosage: 4X100 MG
  10. MORPHINE [Concomitant]
     Dosage: 4 DF/DAY

REACTIONS (1)
  - RENAL FAILURE ACUTE [None]
